FAERS Safety Report 7050224-2 (Version None)
Quarter: 2010Q4

REPORT INFORMATION
  Report Type: 
  Country: None (occurrence: None)
  Receive Date: 20101018
  Receipt Date: 20101018
  Transmission Date: 20110411
  Serious: Yes (Hospitalization, Other)
  Sender: FDA-Public Use
  Company Number: US-PFIZER INC-2010103279

PATIENT
  Sex: Male
  Weight: 74.8 kg

DRUGS (4)
  1. SUTENT [Suspect]
     Indication: RENAL CANCER
     Dosage: 37.5 MG,
     Route: 048
     Dates: start: 20070101, end: 20100101
  2. KEPPRA [Concomitant]
     Indication: CONVULSION
     Dosage: 500 MG, 2X/DAY
     Route: 048
  3. NEXIUM [Concomitant]
     Indication: GASTROOESOPHAGEAL REFLUX DISEASE
     Dosage: 40 MG, 1X/DAY
  4. ACETYLSALICYLIC ACID [Concomitant]
     Indication: HYPERTENSION
     Dosage: 81 MG, 1X/DAY
     Route: 048

REACTIONS (3)
  - ARTERIAL OCCLUSIVE DISEASE [None]
  - CARDIOMYOPATHY [None]
  - HEART RATE IRREGULAR [None]
